FAERS Safety Report 11075189 (Version 1)
Quarter: 2015Q2

REPORT INFORMATION
  Report Type: Spontaneous
  Country: US (occurrence: None)
  Receive Date: 20150428
  Receipt Date: 20150428
  Transmission Date: 20150821
  Serious: No
  Sender: FDA-Public Use
  Company Number: None

PATIENT
  Age: 80 Year
  Sex: Female

DRUGS (7)
  1. CALCIUM [Concomitant]
     Active Substance: CALCIUM
  2. BENAZEPRIL HYDROCHLORIDE. [Suspect]
     Active Substance: BENAZEPRIL HYDROCHLORIDE
  3. GENERIC PROMETHAZINE DM [Suspect]
     Active Substance: DEXTROMETHORPHAN HYDROBROMIDE\PROMETHAZINE HYDROCHLORIDE
     Indication: VIRAL INFECTION
     Route: 048
     Dates: start: 20150412, end: 20150413
  4. ASPIRIN LOW DOSE [Suspect]
     Active Substance: ASPIRIN
  5. METOPROLOL [Suspect]
     Active Substance: METOPROLOL
  6. GENERIC PROMETHAZINE DM [Suspect]
     Active Substance: DEXTROMETHORPHAN HYDROBROMIDE\PROMETHAZINE HYDROCHLORIDE
     Indication: COUGH
     Route: 048
     Dates: start: 20150412, end: 20150413
  7. VITAMIN D [Concomitant]
     Active Substance: CHOLECALCIFEROL

REACTIONS (5)
  - Ocular hyperaemia [None]
  - Eyelid margin crusting [None]
  - Erythema [None]
  - Eye swelling [None]
  - Eyelid oedema [None]
